FAERS Safety Report 6903139-1 (Version None)
Quarter: 2010Q3

REPORT INFORMATION
  Report Type: 
  Country: None (occurrence: None)
  Receive Date: 20100803
  Receipt Date: 20080618
  Transmission Date: 20110219
  Serious: No
  Sender: FDA-Public Use
  Company Number: US-PFIZER INC-2008012384

PATIENT
  Age: 54 Year
  Sex: Female
  Weight: 90.7 kg

DRUGS (1)
  1. LYRICA [Suspect]
     Indication: FIBROMYALGIA
     Route: 048
     Dates: start: 20070101

REACTIONS (5)
  - DIZZINESS [None]
  - DRUG INEFFECTIVE [None]
  - MEDICATION ERROR [None]
  - UNEVALUABLE EVENT [None]
  - WEIGHT INCREASED [None]
